FAERS Safety Report 13207875 (Version 1)
Quarter: 2017Q1

REPORT INFORMATION
  Report Type: Spontaneous
  Country: US (occurrence: US)
  Receive Date: 20170209
  Receipt Date: 20170209
  Transmission Date: 20170428
  Serious: No
  Sender: FDA-Public Use
  Company Number: US-TEIKOKU PHARMA USA-TPU2017-00064

PATIENT
  Sex: Female
  Weight: 68.1 kg

DRUGS (9)
  1. ASPIRIN. [Suspect]
     Active Substance: ASPIRIN
     Indication: STENT PLACEMENT
     Dates: start: 2011
  2. ATENOLOL. [Concomitant]
     Active Substance: ATENOLOL
     Indication: HYPERTENSION
  3. VICODIN [Suspect]
     Active Substance: ACETAMINOPHEN\HYDROCODONE BITARTRATE
     Indication: ARTHRITIS
  4. LIDODERM [Suspect]
     Active Substance: LIDOCAINE
     Indication: CERVICOGENIC HEADACHE
     Dosage: USE 1 PATCH ON LEFT SHOULDER ON OVERNIGHT FOR 10-12 WHEN NEEDED FOR HEADACHES
     Dates: start: 2008, end: 201612
  5. ALPRAZOLAM. [Concomitant]
     Active Substance: ALPRAZOLAM
     Indication: ANXIETY
  6. GENERIC FIORICET [Concomitant]
     Indication: HEADACHE
     Dosage: AS NEEDED FOR A REALLY BAD HEADACHE, NOT OFTEN
     Dates: start: 1992
  7. LOSARTIN [Concomitant]
     Active Substance: LOSARTAN
     Indication: HYPERTENSION
  8. LIDOCAINE PATCH [Suspect]
     Active Substance: LIDOCAINE
     Indication: CERVICOGENIC HEADACHE
  9. ZOCOR [Concomitant]
     Active Substance: SIMVASTATIN
     Indication: BLOOD CHOLESTEROL INCREASED

REACTIONS (4)
  - Hallucination [Unknown]
  - Drug ineffective for unapproved indication [Unknown]
  - Abdominal pain upper [Unknown]
  - Emergency care [Recovered/Resolved]
